FAERS Safety Report 10347355 (Version 1)
Quarter: 2014Q3

REPORT INFORMATION
  Report Type: Spontaneous
  Country: US (occurrence: None)
  Receive Date: 20140725
  Receipt Date: 20140725
  Transmission Date: 20150326
  Serious: Yes (Death, Hospitalization)
  Sender: FDA-Public Use
  Company Number: KV201400119

PATIENT

DRUGS (1)
  1. MAKENA [Suspect]
     Active Substance: HYDROXYPROGESTERONE CAPROATE
     Indication: EXPOSURE DURING PREGNANCY
     Dates: start: 20140224, end: 20140406

REACTIONS (6)
  - Foetal distress syndrome [None]
  - Bradycardia foetal [None]
  - Maternal drugs affecting foetus [None]
  - Premature baby [None]
  - Caesarean section [None]
  - Death neonatal [None]

NARRATIVE: CASE EVENT DATE: 201406
